FAERS Safety Report 9168134 (Version 1)
Quarter: 2013Q1

REPORT INFORMATION
  Report Type: Spontaneous
  Country: JP (occurrence: None)
  Receive Date: 20130305
  Receipt Date: 20130305
  Transmission Date: 20140127
  Serious: Yes (Disabling)
  Sender: FDA-Public Use
  Company Number: AE-SPE-2013-006

PATIENT
  Age: 71 Year
  Sex: Female

DRUGS (4)
  1. GIASION [Suspect]
     Indication: BRONCHITIS
     Route: 048
     Dates: start: 20130122, end: 20130208
  2. DIAMICRON (GLICLAZIDE) 80 MG TABLET [Concomitant]
  3. SEROQUEL (QUETIAPINE FUMARATE) 25 MG FILM-COATED TABLET [Concomitant]
  4. LASIX (FUROSEMIDE) 25 MG TABLET [Concomitant]

REACTIONS (3)
  - Thrombophlebitis [None]
  - Pruritus [None]
  - Urticaria [None]
